FAERS Safety Report 10063053 (Version 1)
Quarter: 2014Q2

REPORT INFORMATION
  Report Type: Spontaneous
  Country: US (occurrence: US)
  Receive Date: 20140407
  Receipt Date: 20140407
  Transmission Date: 20141212
  Serious: Yes (Other)
  Sender: FDA-Public Use
  Company Number: US-BAYER-2014-048765

PATIENT
  Sex: Female

DRUGS (1)
  1. ALEVE TABLET [Suspect]
     Indication: HEADACHE
     Dosage: 1 DF, ONCE
     Route: 048
     Dates: start: 20140327, end: 20140327

REACTIONS (3)
  - Swollen tongue [Not Recovered/Not Resolved]
  - Swelling face [Not Recovered/Not Resolved]
  - Mouth swelling [Not Recovered/Not Resolved]
